FAERS Safety Report 19314517 (Version 2)
Quarter: 2021Q3

REPORT INFORMATION
  Report Type: Spontaneous
  Country: JP (occurrence: JP)
  Receive Date: 20210527
  Receipt Date: 20210723
  Transmission Date: 20211014
  Serious: Yes (Death, Other)
  Sender: FDA-Public Use
  Company Number: JP-ASPEN-GLO2021JP004049

PATIENT

DRUGS (5)
  1. DEXAMETHASONE. [Suspect]
     Active Substance: DEXAMETHASONE
     Dosage: 6 MG
     Route: 065
  2. FAVIPIRAVIR [Concomitant]
     Active Substance: FAVIPIRAVIR
     Indication: COVID-19 PNEUMONIA
     Dosage: UNK
     Route: 065
  3. REMDESIVIR. [Concomitant]
     Active Substance: REMDESIVIR
     Indication: COVID-19 PNEUMONIA
     Dosage: UNK
     Route: 065
  4. TOCILIZUMAB. [Concomitant]
     Active Substance: TOCILIZUMAB
     Indication: RESPIRATORY DISORDER
     Dosage: UNK
     Route: 065
  5. DEXAMETHASONE. [Suspect]
     Active Substance: DEXAMETHASONE
     Indication: COVID-19 PNEUMONIA
     Dosage: 6 MG
     Route: 065

REACTIONS (1)
  - Pneumonia cytomegaloviral [Fatal]
